FAERS Safety Report 7404476-7 (Version None)
Quarter: 2011Q2

REPORT INFORMATION
  Report Type: 
  Country: None (occurrence: None)
  Receive Date: 20110408
  Receipt Date: 20110330
  Transmission Date: 20111010
  Serious: Yes (Other)
  Sender: FDA-Public Use
  Company Number: US-RB-011586-10

PATIENT
  Age: 46 Year
  Sex: Female

DRUGS (6)
  1. SUBOXONE [Suspect]
     Indication: DRUG DEPENDENCE
     Route: 060
     Dates: start: 20100101, end: 20100101
  2. TRAZODONE HCL [Concomitant]
     Indication: SLEEP DISORDER
     Dosage: DOSAGE INFORMATION UNKNOWN
     Route: 065
  3. SUBOXONE [Suspect]
     Route: 060
     Dates: start: 20100301, end: 20110101
  4. ATIVAN [Concomitant]
     Indication: ANXIETY
     Dosage: DOSAGE INFORMATION UNKNOWN
     Route: 065
  5. SEROQUEL [Concomitant]
     Indication: DEPRESSION
     Dosage: DOSAGE INFORMATION UNKNOWN
     Route: 065
  6. SUBOXONE [Suspect]
     Indication: PRODUCT USED FOR UNKNOWN INDICATION
     Dosage: SUBLINGUAL FILM
     Route: 060
     Dates: start: 20110201

REACTIONS (7)
  - ANXIETY [None]
  - HEADACHE [None]
  - PHARYNGEAL OEDEMA [None]
  - DEPRESSION [None]
  - DECREASED APPETITE [None]
  - ERYTHEMA [None]
  - SUICIDAL IDEATION [None]
